FAERS Safety Report 11080399 (Version 1)
Quarter: 2015Q2

REPORT INFORMATION
  Report Type: Spontaneous
  Country: MX (occurrence: MX)
  Receive Date: 20150430
  Receipt Date: 20150430
  Transmission Date: 20150821
  Serious: Yes (Hospitalization)
  Sender: FDA-Public Use
  Company Number: MX-SA-2015SA056259

PATIENT
  Sex: Female

DRUGS (1)
  1. COAPROVEL [Suspect]
     Active Substance: HYDROCHLOROTHIAZIDE\IRBESARTAN
     Dosage: COAPROVEL ? (IRBESARTAN + HYDROCHLOROTHIAZIDE) (150 MG + 12.5 MG;?TABLET)
     Route: 048

REACTIONS (1)
  - Fall [Unknown]
